FAERS Safety Report 7736233-6 (Version None)
Quarter: 2011Q3

REPORT INFORMATION
  Report Type: 
  Country: None (occurrence: None)
  Receive Date: 20110908
  Receipt Date: 20110831
  Transmission Date: 20111222
  Serious: Yes (Other)
  Sender: FDA-Public Use
  Company Number: ES-ASTELLAS-2011EU003880

PATIENT
  Sex: Female
  Weight: 56 kg

DRUGS (4)
  1. AMIODARONE HCL [Interacting]
     Indication: CARDIAC FIBRILLATION
     Dosage: 200 MG, UNKNOWN/D
     Route: 048
     Dates: start: 20110220, end: 20110428
  2. PROGRAF [Interacting]
     Dosage: 4 MG, Q12 HOURS
     Route: 048
     Dates: start: 20110428
  3. PROGRAF [Interacting]
     Dosage: 6 MG, Q12 HOURS
     Route: 048
  4. PROGRAF [Suspect]
     Indication: LUNG TRANSPLANT
     Dosage: 3.5 MG, Q12 HOURS
     Route: 048
     Dates: start: 20110215

REACTIONS (3)
  - IMMUNOSUPPRESSANT DRUG LEVEL DECREASED [None]
  - OFF LABEL USE [None]
  - DRUG INTERACTION [None]
